FAERS Safety Report 16767519 (Version 1)
Quarter: 2019Q3

REPORT INFORMATION
  Report Type: Spontaneous
  Country: FR (occurrence: FR)
  Receive Date: 20190903
  Receipt Date: 20190903
  Transmission Date: 20191005
  Serious: Yes (Other)
  Sender: FDA-Public Use
  Company Number: FR-MYLANLABS-2019M1081707

PATIENT
  Age: 67 Year
  Sex: Male

DRUGS (7)
  1. VALGANCICLOVIR. [Suspect]
     Active Substance: VALGANCICLOVIR
     Indication: CYTOMEGALOVIRUS INFECTION
     Dosage: UNK
  2. GANCICLOVIR                        /00784202/ [Suspect]
     Active Substance: GANCICLOVIR SODIUM
     Dosage: 10 MILLIGRAM/KILOGRAM, QD
     Route: 065
  3. FOSCARNET SODIUM. [Suspect]
     Active Substance: FOSCARNET SODIUM
     Indication: PROPHYLAXIS
     Dosage: 120 MILLIGRAM/KILOGRAM, QD
     Route: 065
  4. VALGANCICLOVIR. [Suspect]
     Active Substance: VALGANCICLOVIR
     Indication: PROPHYLAXIS
     Dosage: 1800 MILLIGRAM, QD
     Route: 065
  5. GANCICLOVIR                        /00784202/ [Suspect]
     Active Substance: GANCICLOVIR SODIUM
     Indication: CYTOMEGALOVIRUS INFECTION
     Dosage: 20 MILLIGRAM/KILOGRAM, QD
     Route: 065
  6. FOSCARNET SODIUM. [Suspect]
     Active Substance: FOSCARNET SODIUM
     Indication: CYTOMEGALOVIRUS INFECTION
     Dosage: 240 MILLIGRAM/KILOGRAM, QD
     Route: 065
  7. EVEROLIMUS. [Suspect]
     Active Substance: EVEROLIMUS
     Indication: PRODUCT USED FOR UNKNOWN INDICATION
     Dosage: 20 MILLIGRAM/KILOGRAM, QD
     Route: 065

REACTIONS (3)
  - Haematuria [Unknown]
  - Renal tubular disorder [Unknown]
  - Drug resistance [Unknown]
